FAERS Safety Report 23970530 (Version 2)
Quarter: 2024Q3

REPORT INFORMATION
  Report Type: Spontaneous
  Country: GB (occurrence: GB)
  Receive Date: 20240613
  Receipt Date: 20240702
  Transmission Date: 20241016
  Serious: Yes (Other)
  Sender: ADVANZ PHARMA
  Company Number: GB-SA-2024SA164068

PATIENT

DRUGS (6)
  1. ZONISAMIDE [Interacting]
     Active Substance: ZONISAMIDE
     Indication: Temporal lobe epilepsy
     Dosage: 150 MG, QD (CAPSULE)
  2. VALPROATE SODIUM [Interacting]
     Active Substance: VALPROATE SODIUM
     Indication: Temporal lobe epilepsy
     Dosage: 1500 MG, QD
  3. LEVETIRACETAM [Interacting]
     Active Substance: LEVETIRACETAM
     Indication: Temporal lobe epilepsy
     Dosage: 2000 MG, QD
  4. CARBAMAZEPINE [Interacting]
     Active Substance: CARBAMAZEPINE
     Indication: Temporal lobe epilepsy
     Dosage: 1000 MG, QD
  5. TARIQUIDAR [Interacting]
     Active Substance: TARIQUIDAR
     Indication: Product used for unknown indication
     Dosage: UNK
     Route: 042
  6. CLOBAZAM [Concomitant]
     Active Substance: CLOBAZAM
     Indication: Seizure cluster
     Dosage: 10 MG

REACTIONS (4)
  - Drug interaction [Unknown]
  - Ataxia [Unknown]
  - Vision blurred [Unknown]
  - Nausea [Unknown]
